FAERS Safety Report 13147908 (Version 1)
Quarter: 2017Q1

REPORT INFORMATION
  Report Type: Report from Study
  Country: CA (occurrence: CA)
  Receive Date: 20170125
  Receipt Date: 20170125
  Transmission Date: 20170428
  Serious: Yes (Hospitalization, Other)
  Sender: FDA-Public Use
  Company Number: CA-ORION CORPORATION ORION PHARMA-TREX2017-0289

PATIENT
  Age: 52 Year
  Sex: Female

DRUGS (6)
  1. PROTOL [Concomitant]
     Route: 065
  2. ENBREL [Suspect]
     Active Substance: ETANERCEPT
     Indication: RHEUMATOID ARTHRITIS
     Route: 065
     Dates: start: 2012
  3. PLAQUENIL [Suspect]
     Active Substance: HYDROXYCHLOROQUINE SULFATE
     Route: 065
  4. ARAVA [Suspect]
     Active Substance: LEFLUNOMIDE
     Route: 065
  5. METHOTREXATE (TRADE NAME UNKNOWN) [Suspect]
     Active Substance: METHOTREXATE
     Route: 065
  6. IBUPROFEN. [Concomitant]
     Active Substance: IBUPROFEN
     Route: 065

REACTIONS (8)
  - Back pain [Not Recovered/Not Resolved]
  - Genital pain [Not Recovered/Not Resolved]
  - Treatment failure [Unknown]
  - Cystitis [Unknown]
  - Nephrolithiasis [Unknown]
  - Blood urine present [Unknown]
  - Hysterectomy [Unknown]
  - Unevaluable event [Unknown]

NARRATIVE: CASE EVENT DATE: 201610
